FAERS Safety Report 6190753-7 (Version None)
Quarter: 2009Q2

REPORT INFORMATION
  Report Type: 
  Country: None (occurrence: None)
  Receive Date: 20090514
  Receipt Date: 20090505
  Transmission Date: 20091009
  Serious: Yes (Other)
  Sender: FDA-Public Use
  Company Number: FR-JNJCH-2009012924

PATIENT
  Sex: Female

DRUGS (5)
  1. CETIRIZINE HYDROCHLORIDE [Suspect]
     Dosage: TEXT:NI/ 1 DF
     Route: 048
  2. CETIRIZINE HYDROCHLORIDE [Suspect]
  3. PAROXETINE HYDROCHLORIDE [Suspect]
     Dosage: TEXT:40 MG
     Route: 048
     Dates: start: 20080117, end: 20081112
  4. VALPROMIDE [Suspect]
     Dosage: TEXT:1 DF/2 DF
     Route: 048
  5. VALPROMIDE [Suspect]

REACTIONS (1)
  - HEPATITIS [None]
